FAERS Safety Report 19451796 (Version 1)
Quarter: 2021Q2

REPORT INFORMATION
  Report Type: Report from Study
  Country: CA (occurrence: CA)
  Receive Date: 20210623
  Receipt Date: 20210623
  Transmission Date: 20210717
  Serious: Yes (Hospitalization)
  Sender: FDA-Public Use
  Company Number: CA-AMGEN-CANNI2020031229

PATIENT
  Age: 46 Year
  Sex: Female

DRUGS (5)
  1. CANDESARTAN CILEXETIL. [Suspect]
     Active Substance: CANDESARTAN CILEXETIL
     Indication: MIGRAINE
     Dosage: UNK
     Route: 065
     Dates: start: 20190529
  2. PREGABALIN. [Suspect]
     Active Substance: PREGABALIN
     Indication: MIGRAINE
     Dosage: UNK
     Route: 065
     Dates: start: 20190529
  3. PROPRANOLOL HYDROCHLORIDE. [Suspect]
     Active Substance: PROPRANOLOL HYDROCHLORIDE
     Indication: MIGRAINE
     Dosage: UNK
     Route: 065
     Dates: start: 20190529
  4. AIMOVIG [Suspect]
     Active Substance: ERENUMAB-AOOE
     Indication: MIGRAINE
     Dosage: UNK
     Route: 065
     Dates: start: 20190529
  5. VALPROIC ACID [VALPROATE SODIUM] [Suspect]
     Active Substance: VALPROATE SODIUM
     Indication: MIGRAINE
     Dosage: UNK } 10 YEARS
     Route: 065
     Dates: start: 20190529

REACTIONS (5)
  - Drug ineffective for unapproved indication [Unknown]
  - Balance disorder [Unknown]
  - Somnolence [Unknown]
  - Off label use [Unknown]
  - Drug ineffective [Unknown]
